FAERS Safety Report 20040446 (Version 1)
Quarter: 2021Q4

REPORT INFORMATION
  Report Type: Spontaneous
  Country: US (occurrence: None)
  Receive Date: 20211105
  Receipt Date: 20211105
  Transmission Date: 20220303
  Serious: Yes (Hospitalization)
  Sender: FDA-Public Use
  Company Number: None

PATIENT
  Age: 68 Year
  Sex: Female

DRUGS (1)
  1. CAPECITABINE [Suspect]
     Active Substance: CAPECITABINE
     Dosage: FREQUENCY : TWICE A DAY;?
     Route: 048
     Dates: start: 202109

REACTIONS (6)
  - Oral disorder [None]
  - Abdominal pain [None]
  - Pulmonary embolism [None]
  - Sepsis [None]
  - Weight decreased [None]
  - Dehydration [None]

NARRATIVE: CASE EVENT DATE: 20211020
